FAERS Safety Report 12870998 (Version 1)
Quarter: 2016Q4

REPORT INFORMATION
  Report Type: Report from Study
  Country: CA (occurrence: CA)
  Receive Date: 20161021
  Receipt Date: 20161021
  Transmission Date: 20170207
  Serious: Yes (Hospitalization, Other)
  Sender: FDA-Public Use
  Company Number: PHHY2014CA086496

PATIENT
  Age: 78 Year
  Sex: Female

DRUGS (4)
  1. SANDOSTATIN [Suspect]
     Active Substance: OCTREOTIDE ACETATE
     Indication: DIARRHOEA
     Dosage: 50 UG, TID
     Route: 058
     Dates: start: 20140726
  2. SANDOSTATIN LAR DEPOT [Suspect]
     Active Substance: OCTREOTIDE ACETATE
     Indication: GASTROINTESTINAL HYPOMOTILITY
     Dosage: 20 MG, QMO
     Route: 030
     Dates: start: 20140711
  3. SANDOSTATIN LAR DEPOT [Suspect]
     Active Substance: OCTREOTIDE ACETATE
     Indication: DIARRHOEA
  4. SANDOSTATIN [Suspect]
     Active Substance: OCTREOTIDE ACETATE
     Indication: GASTROINTESTINAL HYPOMOTILITY
     Dosage: 50 UG, TID
     Route: 058
     Dates: start: 20140626, end: 20140710

REACTIONS (15)
  - Anxiety [Unknown]
  - Blood pressure increased [Unknown]
  - Blood iron decreased [Unknown]
  - Gastroenteritis [Unknown]
  - Neck mass [Unknown]
  - Vomiting [Unknown]
  - Product use issue [Unknown]
  - Nausea [Recovered/Resolved]
  - Abdominal pain [Unknown]
  - Injection site pain [Unknown]
  - Diarrhoea [Unknown]
  - Blood pressure diastolic decreased [Unknown]
  - Haematochezia [Unknown]
  - Clostridium difficile infection [Unknown]
  - Heart rate decreased [Unknown]

NARRATIVE: CASE EVENT DATE: 20140711
